FAERS Safety Report 5089193-3 (Version None)
Quarter: 2006Q3

REPORT INFORMATION
  Report Type: 
  Country: None (occurrence: None)
  Receive Date: 20060727
  Receipt Date: 20060530
  Transmission Date: 20061208
  Serious: Yes (Other)
  Sender: FDA-Public Use
  Company Number: 2006071180

PATIENT
  Sex: Female

DRUGS (1)
  1. LYRICA [Suspect]
     Indication: ILL-DEFINED DISORDER
     Dosage: 300 MG (100 MG 3 IN 1 D), UNKNOWN
     Route: 065
     Dates: end: 20060501

REACTIONS (3)
  - MALAISE [None]
  - MUSCLE SPASMS [None]
  - PYREXIA [None]
